FAERS Safety Report 5897283-8 (Version None)
Quarter: 2008Q3

REPORT INFORMATION
  Report Type: 
  Country: None (occurrence: None)
  Receive Date: 20080924
  Receipt Date: 20080924
  Transmission Date: 20090109
  Serious: Yes (Life-Threatening, Hospitalization, Disabling)
  Sender: FDA-Public Use
  Company Number: None

PATIENT

DRUGS (2)
  1. YAZ [Suspect]
     Indication: ACNE
     Dosage: ONCE DAILY X ORAL
     Route: 048
     Dates: start: 20080501, end: 20080809
  2. YAZ [Suspect]
     Indication: MENSTRUATION IRREGULAR
     Dosage: ONCE DAILY X ORAL
     Route: 048
     Dates: start: 20080501, end: 20080809

REACTIONS (1)
  - CEREBROVASCULAR ACCIDENT [None]
